FAERS Safety Report 10051598 (Version 1)
Quarter: 2014Q2

REPORT INFORMATION
  Report Type: Report from Study
  Country: US (occurrence: US)
  Receive Date: 20140401
  Receipt Date: 20140401
  Transmission Date: 20141212
  Serious: Yes (Death)
  Sender: FDA-Public Use
  Company Number: US-BRISTOL-MYERS SQUIBB COMPANY-20562492

PATIENT
  Sex: Male

DRUGS (1)
  1. ELIQUIS [Suspect]
     Dates: start: 20140319, end: 20140319

REACTIONS (1)
  - Death [Fatal]
